FAERS Safety Report 8429558-2 (Version None)
Quarter: 2012Q2

REPORT INFORMATION
  Report Type: 
  Country: None (occurrence: None)
  Receive Date: 20120612
  Receipt Date: 20120605
  Transmission Date: 20120825
  Serious: Yes (Death, Other)
  Sender: FDA-Public Use
  Company Number: MY-JNJFOC-20120603270

PATIENT
  Sex: Male

DRUGS (7)
  1. PREDNISONE TAB [Suspect]
     Indication: ANGIOIMMUNOBLASTIC T-CELL LYMPHOMA
     Route: 065
  2. ALBENDAZOLE [Suspect]
     Indication: STRONGYLOIDIASIS
     Dosage: FOR 3 DAYS
     Route: 048
  3. ONCOVIN [Suspect]
     Indication: ANGIOIMMUNOBLASTIC T-CELL LYMPHOMA
     Route: 065
  4. DOXORUBICIN HCL [Suspect]
     Indication: ANGIOIMMUNOBLASTIC T-CELL LYMPHOMA
     Route: 042
  5. PIPERACILLIN AND TAZOBACTAM [Suspect]
     Indication: STRONGYLOIDIASIS
     Dosage: FOR 5 DAYS
     Route: 042
  6. CYCLOPHOSPHAMIDE [Suspect]
     Indication: ANGIOIMMUNOBLASTIC T-CELL LYMPHOMA
     Route: 065
  7. DEXAMETHASONE [Suspect]
     Indication: ANGIOIMMUNOBLASTIC T-CELL LYMPHOMA
     Dosage: HIGH DOSE BEFORE CHOP CHEMOTHERAPY
     Route: 065

REACTIONS (3)
  - STRONGYLOIDIASIS [None]
  - SEPTIC SHOCK [None]
  - KLEBSIELLA BACTERAEMIA [None]
